FAERS Safety Report 21732720 (Version 2)
Quarter: 2022Q4

REPORT INFORMATION
  Report Type: Spontaneous
  Country: US (occurrence: US)
  Receive Date: 20221215
  Receipt Date: 20221222
  Transmission Date: 20230113
  Serious: Yes (Hospitalization, Other)
  Sender: FDA-Public Use
  Company Number: US-ABBVIE-4237474

PATIENT
  Sex: Male

DRUGS (1)
  1. IMBRUVICA [Suspect]
     Active Substance: IBRUTINIB
     Indication: Waldenstrom^s macroglobulinaemia
     Route: 048
     Dates: start: 2018, end: 2022

REACTIONS (5)
  - Pyrexia [Unknown]
  - Nausea [Unknown]
  - Cardiac disorder [Unknown]
  - Therapeutic product effect decreased [Unknown]
  - Biopsy [Unknown]

NARRATIVE: CASE EVENT DATE: 20220101
